FAERS Safety Report 7486044-4 (Version None)
Quarter: 2011Q2

REPORT INFORMATION
  Report Type: 
  Country: None (occurrence: None)
  Receive Date: 20110517
  Receipt Date: 20110511
  Transmission Date: 20111010
  Serious: Yes (Hospitalization)
  Sender: FDA-Public Use
  Company Number: FR-PFIZER INC-2011100578

PATIENT
  Age: 79 Year
  Sex: Male
  Weight: 60 kg

DRUGS (13)
  1. ACETAMINOPHEN [Suspect]
     Indication: PAIN
     Dosage: 3 G, 1X/DAY
     Route: 048
     Dates: start: 20110325, end: 20110414
  2. FOSAVANCE [Concomitant]
     Dosage: UNK
  3. FOLIC ACID [Concomitant]
     Dosage: UNK
  4. LANSOPRAZOLE [Concomitant]
     Dosage: 30 MG, UNK
     Dates: end: 20110301
  5. NEXIUM [Suspect]
     Dosage: 40 MG, 1X/DAY
     Route: 048
     Dates: start: 20110325, end: 20110414
  6. LOVENOX [Suspect]
     Indication: PROPHYLAXIS
     Dosage: 0.4 ML, 1X/DAY
     Route: 058
     Dates: start: 20110325, end: 20110412
  7. PYOSTACINE [Suspect]
     Indication: ESCHAR
     Dosage: 3 G, 1X/DAY
     Route: 048
     Dates: start: 20110405, end: 20110415
  8. OFLOXACIN [Suspect]
     Indication: ESCHAR
  9. NEURONTIN [Concomitant]
     Dosage: 600 UNK, 2X/DAY
  10. SECTRAL [Concomitant]
     Dosage: 200, A? PER DAY
  11. EFFEXOR XR [Suspect]
     Indication: DEPRESSION
     Dosage: 37.5 MG, 2X/DAY
     Route: 048
     Dates: end: 20110413
  12. OFLOXACIN [Suspect]
     Indication: OSTEITIS
     Dosage: UNK
     Dates: start: 20110330, end: 20110405
  13. FLAGYL [Suspect]
     Dosage: UNK
     Dates: start: 20110330, end: 20110405

REACTIONS (5)
  - PANCYTOPENIA [None]
  - NEUTROPENIA [None]
  - ANAEMIA [None]
  - THROMBOCYTOPENIA [None]
  - LYMPHOPENIA [None]
